FAERS Safety Report 7555784-0 (Version None)
Quarter: 2011Q2

REPORT INFORMATION
  Report Type: 
  Country: None (occurrence: None)
  Receive Date: 20110618
  Receipt Date: 20110103
  Transmission Date: 20111010
  Serious: Yes (Hospitalization)
  Sender: FDA-Public Use
  Company Number: US-BAYER-201028364NA

PATIENT
  Age: 20 Year
  Sex: Female
  Weight: 88.435 kg

DRUGS (7)
  1. ADVIL [CHLORPHENAMINE MALEATE,IBUPROFEN,PSEUDOEPHEDRINE HYDROCHLORIDE] [Concomitant]
     Dosage: UNK UNK, PRN
  2. PHENTERMINE [Concomitant]
     Indication: MEDICAL DIET
     Dosage: UNK
     Dates: start: 20080601, end: 20080701
  3. IBUPROFEN [Concomitant]
  4. ALEVE [NAPROXEN SODIUM,PSEUDOEPHEDRINE HYDROCHLORIDE] [Concomitant]
     Dosage: UNK UNK, PRN
  5. YAZ [Suspect]
     Indication: CONTRACEPTION
     Dosage: UNK
     Route: 048
     Dates: start: 20080501, end: 20090401
  6. PROMETHAZINE [Concomitant]
     Dosage: UNK
     Dates: start: 20080805
  7. LORTAB [Concomitant]
     Dosage: UNK
     Dates: start: 20080805

REACTIONS (3)
  - ABDOMINAL PAIN UPPER [None]
  - CHOLELITHIASIS [None]
  - CHOLECYSTITIS CHRONIC [None]
